FAERS Safety Report 4933402-5 (Version None)
Quarter: 2006Q1

REPORT INFORMATION
  Report Type: 
  Country: None (occurrence: None)
  Receive Date: 20060306
  Receipt Date: 20060221
  Transmission Date: 20060701
  Serious: Yes (Other)
  Sender: FDA-Public Use
  Company Number: JP-MERCK-0602USA05505

PATIENT
  Age: 31 Year
  Sex: Male

DRUGS (9)
  1. PRIMAXIN [Suspect]
     Indication: URINARY TRACT INFECTION
     Route: 041
     Dates: start: 20060215, end: 20060215
  2. PRIMAXIN [Suspect]
     Route: 041
     Dates: start: 20060216, end: 20060217
  3. PRIMAXIN [Suspect]
     Route: 041
     Dates: start: 20060218, end: 20060218
  4. OMEPRAL [Suspect]
     Route: 065
     Dates: start: 20060215, end: 20060215
  5. OMEPRAL [Suspect]
     Route: 065
     Dates: start: 20060216, end: 20060217
  6. OMEPRAL [Suspect]
     Route: 065
     Dates: start: 20060218, end: 20060218
  7. VITAMEDIN [Concomitant]
     Route: 065
     Dates: end: 20060218
  8. HEPARIN SODIUM [Concomitant]
     Route: 051
     Dates: end: 20060218
  9. PREDONINE [Concomitant]
     Route: 065
     Dates: end: 20060218

REACTIONS (3)
  - ALANINE AMINOTRANSFERASE INCREASED [None]
  - ASPARTATE AMINOTRANSFERASE INCREASED [None]
  - LIVER DISORDER [None]
